FAERS Safety Report 19153719 (Version 1)
Quarter: 2021Q2

REPORT INFORMATION
  Report Type: Spontaneous
  Country: HR (occurrence: HR)
  Receive Date: 20210419
  Receipt Date: 20210419
  Transmission Date: 20210717
  Serious: Yes (Other)
  Sender: FDA-Public Use
  Company Number: HR-MYLANLABS-2021M1022431

PATIENT
  Age: 27 Year
  Sex: Female
  Weight: 80 kg

DRUGS (3)
  1. EBETREXAT                          /00113801/ [Concomitant]
     Active Substance: METHOTREXATE SODIUM
     Indication: JUVENILE IDIOPATHIC ARTHRITIS
     Dosage: 20 MILLIGRAM, QW
     Route: 058
     Dates: start: 2019
  2. CELIXIB [Concomitant]
     Active Substance: CELECOXIB
     Indication: JUVENILE IDIOPATHIC ARTHRITIS
     Dosage: 100 MILLIGRAM, BID
     Route: 048
     Dates: start: 2019
  3. HULIO [Suspect]
     Active Substance: ADALIMUMAB-FKJP
     Indication: JUVENILE IDIOPATHIC ARTHRITIS
     Dosage: 40 MILLIGRAM, BIWEEKLY
     Route: 058
     Dates: start: 20200821, end: 20201126

REACTIONS (2)
  - Drug specific antibody present [Recovering/Resolving]
  - Drug ineffective [Recovering/Resolving]

NARRATIVE: CASE EVENT DATE: 20201126
